FAERS Safety Report 9520490 (Version 2)
Quarter: 2014Q1

REPORT INFORMATION
  Report Type: Report from Study
  Country: US (occurrence: US)
  Receive Date: 20130913
  Receipt Date: 20140204
  Transmission Date: 20141002
  Serious: Yes (Death, Hospitalization)
  Sender: FDA-Public Use
  Company Number: US-ROCHE-1271694

PATIENT
  Age: 58 Year
  Sex: Female

DRUGS (13)
  1. XELODA [Suspect]
     Indication: COLON CANCER
     Dosage: 14 DAYS ON; 7 DAYS OFF
     Route: 048
     Dates: start: 201205
  2. XELODA [Suspect]
     Indication: COLON CANCER
     Dosage: 14 DAYS ON; 7 DAYS OFF
     Route: 048
  3. AVASTIN [Suspect]
     Indication: COLON CANCER
     Route: 065
     Dates: start: 20130307
  4. AVASTIN [Suspect]
     Indication: COLON CANCER
  5. VITAMIN B6 [Concomitant]
     Route: 048
  6. LOMOTIL (UNITED STATES) [Concomitant]
     Dosage: 0.25 TO 2.5 MG AS NEEDED
     Route: 048
  7. PROMETHAZINE [Concomitant]
     Indication: NAUSEA
     Dosage: AS NEEDED
     Route: 048
  8. AMLODIPINE [Concomitant]
     Route: 048
  9. CELEXA (UNITED STATES) [Concomitant]
     Route: 048
  10. VICODIN [Concomitant]
     Indication: PAIN
     Dosage: AS NEEDED
     Route: 048
  11. PRILOSEC [Concomitant]
     Route: 048
  12. OXALIPLATIN [Concomitant]
     Route: 065
     Dates: start: 20130307
  13. IMODIUM [Concomitant]
     Route: 048

REACTIONS (9)
  - Death [Fatal]
  - Intestinal obstruction [Recovered/Resolved]
  - Diarrhoea [Unknown]
  - Vomiting [Unknown]
  - Abdominal pain [Unknown]
  - Enteritis [Unknown]
  - Abdominal pain upper [Unknown]
  - Dyspepsia [Unknown]
  - Neuropathy peripheral [Unknown]
